FAERS Safety Report 16183115 (Version 1)
Quarter: 2019Q2

REPORT INFORMATION
  Report Type: Spontaneous
  Country: ES (occurrence: ES)
  Receive Date: 20190411
  Receipt Date: 20190411
  Transmission Date: 20190711
  Serious: Yes (Other)
  Sender: FDA-Public Use
  Company Number: ES-ACCORD-119858

PATIENT
  Age: 96 Year
  Sex: Male

DRUGS (1)
  1. NALTREXONE/NALTREXONE HYDROCHLORIDE [Suspect]
     Active Substance: NALTREXONE
     Indication: PRURITUS
     Dosage: STRENGTH 50 MG,25/24 H RISING UP TO 50/24 H
     Route: 048
     Dates: start: 20180730, end: 20180803

REACTIONS (2)
  - Urinary retention [Recovered/Resolved]
  - Off label use [Unknown]

NARRATIVE: CASE EVENT DATE: 20180801
